FAERS Safety Report 18473806 (Version 3)
Quarter: 2021Q1

REPORT INFORMATION
  Report Type: Report from Study
  Country: CA (occurrence: CA)
  Receive Date: 20201106
  Receipt Date: 20210319
  Transmission Date: 20210419
  Serious: Yes (Life-Threatening, Other)
  Sender: FDA-Public Use
  Company Number: CA-MYLANLABS-2020M1092720

PATIENT
  Sex: Female

DRUGS (5)
  1. EPIPEN [Suspect]
     Active Substance: EPINEPHRINE
     Indication: HYPERSENSITIVITY
     Dosage: UNK
     Route: 065
  2. EPIPEN [Suspect]
     Active Substance: EPINEPHRINE
     Indication: SWOLLEN TONGUE
  3. EPIPEN [Suspect]
     Active Substance: EPINEPHRINE
     Indication: PERIPHERAL SWELLING
  4. EPIPEN [Suspect]
     Active Substance: EPINEPHRINE
     Indication: URTICARIA
  5. EPIPEN [Suspect]
     Active Substance: EPINEPHRINE
     Indication: DIARRHOEA

REACTIONS (2)
  - Device failure [Recovering/Resolving]
  - Product quality issue [Recovering/Resolving]
